FAERS Safety Report 12639719 (Version 1)
Quarter: 2016Q3

REPORT INFORMATION
  Report Type: Spontaneous
  Country: US (occurrence: US)
  Receive Date: 20160810
  Receipt Date: 20160810
  Transmission Date: 20161109
  Serious: No
  Sender: FDA-Public Use
  Company Number: US-BAYER-2016-144139

PATIENT
  Age: 66 Year
  Sex: Male

DRUGS (1)
  1. CLARITIN REDITABS [Suspect]
     Active Substance: LORATADINE
     Indication: RHINORRHOEA
     Dosage: BID1 DF, UNK
     Route: 048
     Dates: start: 20160720, end: 20160720

REACTIONS (2)
  - Pain [Recovered/Resolved]
  - Chest pain [Recovered/Resolved]

NARRATIVE: CASE EVENT DATE: 20160720
